FAERS Safety Report 21547055 (Version 1)
Quarter: 2022Q4

REPORT INFORMATION
  Report Type: Report from Study
  Country: SE (occurrence: SE)
  Receive Date: 20221103
  Receipt Date: 20221103
  Transmission Date: 20230113
  Serious: Yes (Hospitalization, Other)
  Sender: FDA-Public Use
  Company Number: SE-ABBVIE-4177240

PATIENT
  Age: 65 Year
  Sex: Male
  Weight: 90 kg

DRUGS (3)
  1. CARBIDOPA\LEVODOPA [Suspect]
     Active Substance: CARBIDOPA\LEVODOPA
     Indication: Parkinson^s disease
     Dosage: THERAPY DURATION: REMAINS AT 16H.?DRUG END DATE WAS OCT 2022
     Route: 050
     Dates: start: 20221024
  2. CARBIDOPA\LEVODOPA [Suspect]
     Active Substance: CARBIDOPA\LEVODOPA
     Dosage: DRUG START DATE WAS 2022
     Route: 050
  3. CARBIDOPA\ENTACAPONE\LEVODOPA [Suspect]
     Active Substance: CARBIDOPA\ENTACAPONE\LEVODOPA
     Indication: Product used for unknown indication
     Dates: end: 20221024

REACTIONS (3)
  - Device occlusion [Recovered/Resolved]
  - Hospitalisation [Not Recovered/Not Resolved]
  - Off label use [Recovered/Resolved]

NARRATIVE: CASE EVENT DATE: 20221001
